FAERS Safety Report 6437526-5 (Version None)
Quarter: 2009Q4

REPORT INFORMATION
  Report Type: 
  Country: None (occurrence: None)
  Receive Date: 20091109
  Receipt Date: 20091026
  Transmission Date: 20100525
  Serious: Yes (Hospitalization)
  Sender: FDA-Public Use
  Company Number: 2009AP004310

PATIENT
  Age: 61 Year
  Sex: Male

DRUGS (9)
  1. CITALOPRAM HYDROBROMIDE [Suspect]
     Indication: SCHIZOPHRENIA
     Dosage: PO
     Route: 048
  2. CLOZARIL [Suspect]
     Indication: SCHIZOPHRENIA
     Dosage: PO
     Route: 048
     Dates: start: 20090115, end: 20090129
  3. CLOZARIL [Suspect]
     Indication: SCHIZOPHRENIA
     Dosage: PO
     Route: 048
     Dates: start: 20030714
  4. CLOZARIL [Suspect]
     Indication: SCHIZOPHRENIA
     Dosage: PO
     Route: 048
     Dates: start: 20090113
  5. DIAZEPAM [Suspect]
  6. VALPROIC ACID [Suspect]
     Indication: SCHIZOPHRENIA
     Dosage: PO
     Route: 048
     Dates: start: 20090115, end: 20090129
  7. ASPIRIN [Concomitant]
  8. METFORMIN HCL [Concomitant]
  9. SIMVASTATIN [Concomitant]

REACTIONS (4)
  - CONFUSIONAL STATE [None]
  - CSF TEST ABNORMAL [None]
  - CSF WHITE BLOOD CELL COUNT POSITIVE [None]
  - OVERDOSE [None]
